FAERS Safety Report 5009826-7 (Version None)
Quarter: 2006Q2

REPORT INFORMATION
  Report Type: 
  Country: None (occurrence: None)
  Receive Date: 20060522
  Receipt Date: 20060509
  Transmission Date: 20061013
  Serious: Yes (Hospitalization)
  Sender: FDA-Public Use
  Company Number: 2006063034

PATIENT
  Age: 78 Year
  Sex: Female
  Weight: 80 kg

DRUGS (14)
  1. NEURONTIN [Suspect]
     Indication: CONVULSION
     Dosage: 1200 MG (400 MG, 3 IN 1 D), ORAL
     Route: 048
     Dates: start: 20060302, end: 20060323
  2. HEPARIN SODIUM [Suspect]
     Indication: PHLEBITIS
     Dosage: SUBCUTANEOUS
     Route: 058
     Dates: start: 20060311, end: 20060320
  3. HEPARIN SODIUM [Suspect]
     Indication: THROMBOPHLEBITIS
     Dosage: SUBCUTANEOUS
     Route: 058
     Dates: start: 20060311, end: 20060320
  4. AMLODIPINE [Concomitant]
  5. LASIX [Concomitant]
  6. PREVISCAN (FLUINDIONE) [Concomitant]
  7. AUGMENTIN '125' [Concomitant]
  8. ATACAND [Concomitant]
  9. POTASSIUM CHLORIDE [Concomitant]
  10. EUPRESSYL (URAPIDIL) [Concomitant]
  11. KARDEGIC (ACETYLSALICYLATE LYSINE) [Concomitant]
  12. BISOPROLOL FUMARATE [Concomitant]
  13. CORDARONE [Concomitant]
  14. ATHYMIL (MIANSERIN HYDROCHLORIDE) [Concomitant]

REACTIONS (9)
  - GENERAL PHYSICAL HEALTH DETERIORATION [None]
  - HAEMATURIA [None]
  - HYPOXIA [None]
  - LEUKOCYTOCLASTIC VASCULITIS [None]
  - PHLEBITIS [None]
  - PROTEINURIA [None]
  - PULMONARY CONGESTION [None]
  - RENAL FAILURE [None]
  - RESPIRATORY DEPRESSION [None]
